FAERS Safety Report 4626972-8 (Version None)
Quarter: 2005Q1

REPORT INFORMATION
  Report Type: 
  Country: None (occurrence: None)
  Receive Date: 20050331
  Receipt Date: 20050321
  Transmission Date: 20050727
  Serious: Yes (Hospitalization)
  Sender: FDA-Public Use
  Company Number: 2005-03-1505

PATIENT
  Age: 55 Year
  Sex: Female

DRUGS (2)
  1. CELESTONE [Suspect]
     Dosage: ORAL
     Route: 048
     Dates: start: 20050316, end: 20050316
  2. LEVOTHYROXINE SODIUM [Concomitant]

REACTIONS (8)
  - ABDOMINAL PAIN UPPER [None]
  - CHILLS [None]
  - DIZZINESS [None]
  - GASTRIC DISORDER [None]
  - HYPOTHERMIA [None]
  - NAUSEA [None]
  - UNDERDOSE [None]
  - VOMITING [None]
